FAERS Safety Report 7952195-0 (Version None)
Quarter: 2011Q4

REPORT INFORMATION
  Report Type: 
  Country: None (occurrence: None)
  Receive Date: 20111201
  Receipt Date: 20111121
  Transmission Date: 20120403
  Serious: No
  Sender: FDA-Public Use
  Company Number: US-B.I. PHARMACEUTICALS,INC./RIDGEFIELD-2011-BP-21049BP

PATIENT

DRUGS (18)
  1. IPRATROPIUM BROMIDE [Concomitant]
  2. METFORMIN HCL [Concomitant]
  3. ZOLOFT [Concomitant]
  4. TRAZODONE HCL [Concomitant]
  5. DIOVAN [Concomitant]
  6. ALBUTEROL [Concomitant]
  7. AZITHROMYCIN [Concomitant]
  8. PRADAXA [Suspect]
  9. BUDESONIDE [Concomitant]
  10. SINGULAIR [Concomitant]
  11. ECONAZOLE NITRATE [Concomitant]
  12. AMLODIPINE [Concomitant]
  13. REGLAN [Concomitant]
  14. SPIRIVA [Concomitant]
  15. ETHAMBUTOL HYDROCHLORIDE [Concomitant]
  16. NEXIUM [Concomitant]
  17. NASONEX [Concomitant]
  18. ALLOPURINOL [Concomitant]

REACTIONS (2)
  - COMPLEMENT FACTOR ABNORMAL [None]
  - BRONCHIECTASIS [None]
